FAERS Safety Report 7153713-5 (Version None)
Quarter: 2010Q4

REPORT INFORMATION
  Report Type: 
  Country: None (occurrence: None)
  Receive Date: 20101213
  Receipt Date: 20101206
  Transmission Date: 20110411
  Serious: Yes (Other)
  Sender: FDA-Public Use
  Company Number: US-MERCK-1011USA00927

PATIENT
  Age: 56 Year
  Sex: Female
  Weight: 62 kg

DRUGS (4)
  1. FOSAMAX [Suspect]
     Indication: BONE DISORDER
     Route: 048
     Dates: end: 20100901
  2. PREMARIN [Suspect]
     Indication: HORMONE REPLACEMENT THERAPY
     Route: 048
     Dates: start: 19900101, end: 20101001
  3. PREMARIN [Suspect]
     Route: 048
     Dates: start: 20101025
  4. PROMETHAZINE [Suspect]
     Indication: VOMITING
     Route: 065

REACTIONS (8)
  - ANXIETY [None]
  - DIZZINESS [None]
  - LOSS OF CONSCIOUSNESS [None]
  - MUSCULOSKELETAL CHEST PAIN [None]
  - MUSCULOSKELETAL PAIN [None]
  - PAIN IN JAW [None]
  - VISION BLURRED [None]
  - VOMITING [None]
